FAERS Safety Report 4985869-4 (Version None)
Quarter: 2006Q2

REPORT INFORMATION
  Report Type: 
  Country: None (occurrence: None)
  Receive Date: 20060428
  Receipt Date: 20060307
  Transmission Date: 20061013
  Serious: Yes (Disabling, Other)
  Sender: FDA-Public Use
  Company Number: PHBS2006JP03603

PATIENT
  Age: 79 Year
  Sex: Male

DRUGS (6)
  1. PENTCILLIN [Suspect]
     Dosage: 4 G/DAY
     Route: 042
     Dates: start: 20060301, end: 20060302
  2. MINOCYCLINE HCL [Suspect]
     Dosage: 200 MG/DAY
     Route: 042
     Dates: start: 20060303, end: 20060307
  3. DANTRIUM [Suspect]
     Indication: NEUROLEPTIC MALIGNANT SYNDROME
     Dosage: 160 MG/DAY
     Route: 041
     Dates: start: 20060303, end: 20060304
  4. DANTRIUM [Suspect]
     Dosage: 120 MG/DAY
     Route: 041
     Dates: start: 20060305, end: 20060307
  5. CARBENIN [Suspect]
     Dosage: 1 G/DAY
     Route: 041
     Dates: start: 20060303, end: 20060306
  6. PARLODEL [Suspect]
     Indication: NEUROLEPTIC MALIGNANT SYNDROME
     Dosage: 7.5 MG/DAY
     Route: 048
     Dates: start: 20060303, end: 20060307

REACTIONS (9)
  - ALANINE AMINOTRANSFERASE INCREASED [None]
  - ASPARTATE AMINOTRANSFERASE INCREASED [None]
  - BLOOD BILIRUBIN INCREASED [None]
  - GAMMA-GLUTAMYLTRANSFERASE INCREASED [None]
  - HEPATIC FUNCTION ABNORMAL [None]
  - JAUNDICE [None]
  - LIVER DISORDER [None]
  - PLATELET COUNT DECREASED [None]
  - THROMBOCYTOPENIA [None]
